FAERS Safety Report 4839584-8 (Version None)
Quarter: 2005Q4

REPORT INFORMATION
  Report Type: 
  Country: None (occurrence: None)
  Receive Date: 20051128
  Receipt Date: 20051128
  Transmission Date: 20060501
  Serious: Yes (Death)
  Sender: FDA-Public Use
  Company Number: None

PATIENT
  Age: 80 Year
  Sex: Female
  Weight: 58.9676 kg

DRUGS (3)
  1. AMIODARONE   200 MG [Suspect]
     Indication: ATRIAL TACHYCARDIA
     Dosage: 200 MG   DAILY   PO
     Route: 048
  2. BENAZAPRIL/HCT [Concomitant]
  3. WARFARIN [Concomitant]

REACTIONS (8)
  - CARDIAC ARREST [None]
  - COMA [None]
  - DIFFUSE ALVEOLAR DAMAGE [None]
  - DYSPNOEA [None]
  - IMMUNE SYSTEM DISORDER [None]
  - LUNG DISORDER [None]
  - LUNG INFILTRATION [None]
  - OXYGEN SATURATION DECREASED [None]
